FAERS Safety Report 5573015-8 (Version None)
Quarter: 2007Q4

REPORT INFORMATION
  Report Type: 
  Country: None (occurrence: None)
  Receive Date: 20071224
  Receipt Date: 20071224
  Transmission Date: 20080405
  Serious: Yes (Hospitalization)
  Sender: FDA-Public Use
  Company Number: None

PATIENT
  Age: 71 Year
  Sex: Female
  Weight: 73.4827 kg

DRUGS (7)
  1. HYCAMTIN [Suspect]
     Indication: MALIGNANT GLIOMA
     Dosage: 0.2 MG/ML IC CONTINUOUS
     Route: 016
     Dates: start: 20071211, end: 20071214
  2. LEXAPRO [Concomitant]
  3. HYZAAR [Concomitant]
  4. NORVASC [Concomitant]
  5. KEPPRA [Concomitant]
  6. ATIVAN [Concomitant]
  7. DAPSONE [Concomitant]

REACTIONS (5)
  - CEREBELLAR SYNDROME [None]
  - GERSTMANN'S SYNDROME [None]
  - HEMIPARESIS [None]
  - ILL-DEFINED DISORDER [None]
  - INFUSION RELATED REACTION [None]
